FAERS Safety Report 4486917-0 (Version None)
Quarter: 2004Q4

REPORT INFORMATION
  Report Type: 
  Country: None (occurrence: None)
  Receive Date: 20041027
  Receipt Date: 20041012
  Transmission Date: 20050328
  Serious: Yes (Other)
  Sender: FDA-Public Use
  Company Number: GR-JNJFOC-20040707550

PATIENT
  Age: 32 Year
  Sex: Female
  Weight: 65 kg

DRUGS (5)
  1. FENTANYL [Suspect]
     Route: 049
  2. FENTANYL [Suspect]
     Route: 049
  3. FENTANYL [Suspect]
     Indication: RELAPSING POLYCHONDRITIS
     Route: 049
  4. PROPOXYPHEN [Concomitant]
  5. PAROXETINE [Concomitant]

REACTIONS (9)
  - ABNORMAL BEHAVIOUR [None]
  - COGNITIVE DISORDER [None]
  - DRUG DEPENDENCE [None]
  - DRUG EFFECT DECREASED [None]
  - DRUG TOLERANCE [None]
  - DYSTHYMIC DISORDER [None]
  - FATIGUE [None]
  - INTENTIONAL MISUSE [None]
  - SOMNOLENCE [None]
